FAERS Safety Report 11751197 (Version 2)
Quarter: 2015Q4

REPORT INFORMATION
  Report Type: Spontaneous
  Country: US (occurrence: US)
  Receive Date: 20151118
  Receipt Date: 20151217
  Transmission Date: 20160304
  Serious: Yes (Other)
  Sender: FDA-Public Use
  Company Number: US-NOVOPROD-444313

PATIENT
  Age: 65 Year
  Sex: Female
  Weight: 62.13 kg

DRUGS (4)
  1. NOVOLOG [Suspect]
     Active Substance: INSULIN ASPART
     Dosage: 10-12 U, SINGLE DOSE
     Route: 058
     Dates: start: 2012, end: 2012
  2. NOVOLOG [Suspect]
     Active Substance: INSULIN ASPART
     Indication: TYPE 1 DIABETES MELLITUS
     Dosage: SLIDING SCALE TID
     Route: 058
     Dates: start: 1991
  3. NOVOLOG [Suspect]
     Active Substance: INSULIN ASPART
     Dosage: 10-12 U, SINGLE DOSE
     Route: 058
     Dates: start: 2012, end: 2012
  4. LEVEMIR [Suspect]
     Active Substance: INSULIN DETEMIR
     Indication: TYPE 1 DIABETES MELLITUS
     Dosage: 10 TO 12 U, BID
     Route: 058

REACTIONS (2)
  - Wrong drug administered [Recovered/Resolved]
  - Blood glucose decreased [Recovered/Resolved]

NARRATIVE: CASE EVENT DATE: 2012
